FAERS Safety Report 5037294-8 (Version None)
Quarter: 2006Q2

REPORT INFORMATION
  Report Type: 
  Country: None (occurrence: None)
  Receive Date: 20060613
  Receipt Date: 20060417
  Transmission Date: 20061013
  Serious: Yes (Other)
  Sender: FDA-Public Use
  Company Number: US-JNJFOC-20060300875

PATIENT
  Age: 42 Year
  Sex: Female
  Weight: 68.4932 kg

DRUGS (4)
  1. ORTHO EVRA [Suspect]
     Indication: CONTRACEPTION
     Dosage: TRANSDERMAL
     Route: 062
     Dates: start: 20050501, end: 20060228
  2. ORTHO EVRA [Suspect]
     Indication: ENDOMETRIOSIS
     Dosage: TRANSDERMAL
     Route: 062
     Dates: start: 20050501, end: 20060228
  3. VITAMIN E [Concomitant]
  4. EXCEDRIN MIGRAINE (THOMAPYRIN N) [Concomitant]

REACTIONS (1)
  - DEEP VEIN THROMBOSIS [None]
